FAERS Safety Report 21593802 (Version 1)
Quarter: 2022Q4

REPORT INFORMATION
  Report Type: Spontaneous
  Country: US (occurrence: None)
  Receive Date: 20221114
  Receipt Date: 20221114
  Transmission Date: 20230113
  Serious: Yes (unspecified)
  Sender: FDA-Public Use
  Company Number: None

PATIENT
  Age: 39 Year
  Sex: Female
  Weight: 95.1 kg

DRUGS (2)
  1. REMICADE [Suspect]
     Active Substance: INFLIXIMAB
     Indication: Colitis ulcerative
     Dosage: 951 MG ONE TIME INFUSION INTRAVENOUS DRIP
     Route: 041
     Dates: start: 20221111, end: 20221111
  2. Diphenhydramine 25 mg IVP [Concomitant]
     Dates: start: 20221111, end: 20221111

REACTIONS (4)
  - Nasal congestion [None]
  - Pharyngeal paraesthesia [None]
  - Hypersensitivity [None]
  - Infusion related reaction [None]

NARRATIVE: CASE EVENT DATE: 20221111
